FAERS Safety Report 6210692-2 (Version None)
Quarter: 2009Q2

REPORT INFORMATION
  Report Type: 
  Country: None (occurrence: None)
  Receive Date: 20090601
  Receipt Date: 20090526
  Transmission Date: 20091009
  Serious: Yes (Hospitalization)
  Sender: FDA-Public Use
  Company Number: JP-BRISTOL-MYERS SQUIBB COMPANY-14556542

PATIENT
  Age: 68 Year
  Sex: Male
  Weight: 46 kg

DRUGS (10)
  1. ERBITUX [Suspect]
     Indication: COLON CANCER
     Dosage: 360MG/M2: 11DEC08-22JAN09,370 MG/M2:20FEB-17MAR,350MG/M2:24MAR09-ONG.370MG/M2 06MAR09
     Route: 042
     Dates: start: 20081203, end: 20081203
  2. IRINOTECAN HCL [Concomitant]
     Indication: COLON CANCER
     Dosage: 12.8571 MG/M2.
     Route: 042
     Dates: start: 20081203
  3. POLARAMINE [Concomitant]
     Indication: PREMEDICATION
     Route: 042
     Dates: start: 20081203
  4. DECADRON [Concomitant]
     Indication: PREMEDICATION
     Route: 042
     Dates: start: 20081203
  5. DUROTEP [Concomitant]
     Dates: end: 20090324
  6. NAPROXEN [Concomitant]
     Dosage: FORMULATION - TABLETS.
     Route: 048
     Dates: end: 20090324
  7. MUCOSTA [Concomitant]
     Dosage: FORMULATION- TABLETS
     Route: 048
     Dates: start: 20071024, end: 20090324
  8. MAGNESIUM OXIDE [Concomitant]
     Route: 048
     Dates: end: 20090324
  9. PROMAC [Concomitant]
     Dosage: TAKEN AS TABS.
     Route: 048
     Dates: end: 20090324
  10. OXINORM [Concomitant]
     Route: 048
     Dates: end: 20090324

REACTIONS (2)
  - ANOREXIA [None]
  - PYREXIA [None]
